FAERS Safety Report 24093238 (Version 1)
Quarter: 2024Q3

REPORT INFORMATION
  Report Type: Spontaneous
  Country: US (occurrence: US)
  Receive Date: 20240715
  Receipt Date: 20240715
  Transmission Date: 20241017
  Serious: No
  Sender: ROCHE
  Company Number: US-ROCHE-10000019088

PATIENT
  Age: 76 Year
  Sex: Male
  Weight: 81.5 kg

DRUGS (1)
  1. CATHFLO ACTIVASE [Suspect]
     Active Substance: ALTEPLASE
     Indication: Device occlusion
     Dosage: ONCE VIA PEG TUBE
     Route: 065
     Dates: start: 20240630, end: 20240630

REACTIONS (4)
  - Product storage error [Unknown]
  - Off label use [Unknown]
  - Off label use [Unknown]
  - No adverse event [Unknown]

NARRATIVE: CASE EVENT DATE: 20240630
